FAERS Safety Report 6122795-1 (Version None)
Quarter: 2009Q1

REPORT INFORMATION
  Report Type: 
  Country: None (occurrence: None)
  Receive Date: 20090318
  Receipt Date: 20081017
  Transmission Date: 20090719
  Serious: No
  Sender: FDA-Public Use
  Company Number: US-AMGEN-KDL314213

PATIENT
  Sex: Female

DRUGS (5)
  1. NEULASTA [Suspect]
     Indication: CHEMOTHERAPY
     Dates: start: 20080801
  2. LEVOTHYROXINE [Concomitant]
  3. MAGNESIUM CITRATE [Concomitant]
  4. HERBAL SUPPLEMENT [Concomitant]
  5. ACIDOPHILUS [Concomitant]

REACTIONS (1)
  - VITAMIN B12 INCREASED [None]
